FAERS Safety Report 7945431-8 (Version None)
Quarter: 2011Q4

REPORT INFORMATION
  Report Type: 
  Country: None (occurrence: None)
  Receive Date: 20111129
  Receipt Date: 20111117
  Transmission Date: 20120403
  Serious: Yes (Other)
  Sender: FDA-Public Use
  Company Number: US-ELI_LILLY_AND_COMPANY-US201111006301

PATIENT
  Sex: Male

DRUGS (4)
  1. HUMALOG [Suspect]
     Indication: DIABETES MELLITUS
     Dosage: 22 U, UNKNOWN
     Route: 065
  2. HUMALOG [Suspect]
     Dosage: 22 U, UNKNOWN
     Route: 065
  3. LANTUS [Concomitant]
     Dosage: UNK
  4. HUMALOG [Suspect]
     Dosage: 22 U, UNKNOWN
     Route: 065

REACTIONS (3)
  - VISUAL ACUITY REDUCED [None]
  - DIALYSIS [None]
  - INTRAOCULAR PRESSURE INCREASED [None]
